APPROVED DRUG PRODUCT: FOLIC ACID
Active Ingredient: FOLIC ACID
Strength: 1MG
Dosage Form/Route: TABLET;ORAL
Application: A204418 | Product #001 | TE Code: AA
Applicant: NUVO PHAMACEUTICALS INC
Approved: Jul 28, 2015 | RLD: No | RS: No | Type: RX